FAERS Safety Report 5482847-6 (Version None)
Quarter: 2007Q4

REPORT INFORMATION
  Report Type: 
  Country: None (occurrence: None)
  Receive Date: 20071011
  Receipt Date: 20071001
  Transmission Date: 20080405
  Serious: Yes (Other)
  Sender: FDA-Public Use
  Company Number: NL-PFIZER INC-2007082883

PATIENT
  Sex: Male
  Weight: 110 kg

DRUGS (2)
  1. VIAGRA [Suspect]
     Indication: ERECTILE DYSFUNCTION
     Route: 048
     Dates: start: 20070928, end: 20070930
  2. CANNABIS [Concomitant]
     Route: 055

REACTIONS (3)
  - ABASIA [None]
  - BACK PAIN [None]
  - FALL [None]
